FAERS Safety Report 23466190 (Version 1)
Quarter: 2024Q1

REPORT INFORMATION
  Report Type: Spontaneous
  Country: NL (occurrence: NL)
  Receive Date: 20240201
  Receipt Date: 20240201
  Transmission Date: 20240410
  Serious: Yes (Other)
  Sender: FDA-Public Use
  Company Number: None

PATIENT
  Age: 46 Year
  Sex: Female
  Weight: 83 kg

DRUGS (2)
  1. PREDNISONE [Suspect]
     Active Substance: PREDNISONE
     Indication: Dyspnoea
     Dosage: 2 TABLETS ONCE PER DAY ,  BRAND NAME NOT SPECIFIED
     Route: 065
     Dates: start: 20231027, end: 20231106
  2. ALBUTEROL SULFATE [Concomitant]
     Active Substance: ALBUTEROL SULFATE
     Indication: Product used for unknown indication
     Dosage: INHALATION POWDER, 200 ?G/DOSE (MICROGRAMS PER DOSE)
     Route: 065

REACTIONS (1)
  - Malignant hypertension [Recovered/Resolved]
